FAERS Safety Report 7358069-0 (Version None)
Quarter: 2011Q1

REPORT INFORMATION
  Report Type: 
  Country: None (occurrence: None)
  Receive Date: 20110317
  Receipt Date: 20110303
  Transmission Date: 20110831
  Serious: Yes (Hospitalization)
  Sender: FDA-Public Use
  Company Number: PHHY2011NL18083

PATIENT
  Sex: Male

DRUGS (3)
  1. ZOMETA [Suspect]
     Dosage: UNK
     Dates: start: 20110106
  2. ZOMETA [Suspect]
     Dosage: UNK
     Dates: start: 20110203
  3. ZOMETA [Suspect]
     Indication: PROSTATE CANCER METASTATIC
     Dosage: 4 MG/ 5 ML 1X PER 28 DAYS
     Dates: start: 20091117

REACTIONS (4)
  - HAEMOGLOBIN DECREASED [None]
  - BACTERIAL INFECTION [None]
  - NOSOCOMIAL INFECTION [None]
  - TRANSFUSION REACTION [None]
